FAERS Safety Report 6722070-8 (Version None)
Quarter: 2010Q2

REPORT INFORMATION
  Report Type: 
  Country: None (occurrence: None)
  Receive Date: 20100510
  Receipt Date: 20100423
  Transmission Date: 20101027
  Serious: Yes (Hospitalization)
  Sender: FDA-Public Use
  Company Number: 2009002758

PATIENT
  Age: 76 Year
  Sex: Male
  Weight: 80 kg

DRUGS (9)
  1. ERLOTINIB (ERLOTINIB) (TABLET) (ERLOTINIB) [Suspect]
     Indication: LUNG SQUAMOUS CELL CARCINOMA STAGE UNSPECIFIED
     Dosage: (150 MG, QD), ORAL
     Route: 048
     Dates: start: 20090918, end: 20091001
  2. ERLOTINIB (ERLOTINIB) (TABLET) (ERLOTINIB) [Suspect]
     Indication: LUNG SQUAMOUS CELL CARCINOMA STAGE UNSPECIFIED
     Dosage: (150 MG, QD), ORAL
     Route: 048
     Dates: start: 20090612
  3. HARNAL (TAMSULOSIN HYDROCHLORIDE) [Concomitant]
  4. NITRODERM [Concomitant]
  5. BETAMETHASONE [Concomitant]
  6. OMEPRAZOLE [Concomitant]
  7. POVIDONE IODINE [Concomitant]
  8. OLOPATADINE HYDROCHLORIDE [Concomitant]
  9. LEVOFLOXACIN [Concomitant]

REACTIONS (13)
  - ABDOMINAL DISTENSION [None]
  - C-REACTIVE PROTEIN INCREASED [None]
  - GAMMA-GLUTAMYLTRANSFERASE INCREASED [None]
  - GLOMERULONEPHRITIS [None]
  - INFLAMMATION [None]
  - INFLAMMATORY MARKER INCREASED [None]
  - LUNG DISORDER [None]
  - METASTASES TO LYMPH NODES [None]
  - OCCULT BLOOD POSITIVE [None]
  - PERFORMANCE STATUS DECREASED [None]
  - PNEUMONIA [None]
  - RASH [None]
  - STOMATITIS [None]
